FAERS Safety Report 10249000 (Version 1)
Quarter: 2014Q2

REPORT INFORMATION
  Report Type: Spontaneous
  Country: US (occurrence: None)
  Receive Date: 20140522
  Receipt Date: 20140522
  Transmission Date: 20141212
  Serious: No
  Sender: FDA-Public Use
  Company Number: 1000064786

PATIENT
  Age: 56 Year
  Sex: Female

DRUGS (1)
  1. TUDORZA PRESSAIR [Suspect]
     Dosage: RESPIRATORY (INHALATION)
     Route: 055
     Dates: start: 201402, end: 201403

REACTIONS (3)
  - Headache [None]
  - Dyspepsia [None]
  - Chest pain [None]
